FAERS Safety Report 22211876 (Version 4)
Quarter: 2023Q4

REPORT INFORMATION
  Report Type: Spontaneous
  Country: US (occurrence: US)
  Receive Date: 20230414
  Receipt Date: 20231025
  Transmission Date: 20240109
  Serious: Yes (Hospitalization)
  Sender: FDA-Public Use
  Company Number: US-PFIZER INC-PV202300067633

PATIENT
  Age: 65 Year
  Sex: Male

DRUGS (4)
  1. INLYTA [Suspect]
     Active Substance: AXITINIB
     Indication: Renal cell carcinoma
     Dosage: UNK
  2. INLYTA [Suspect]
     Active Substance: AXITINIB
     Dosage: TAKE 3 TABLETS BID
     Route: 048
     Dates: start: 20230410
  3. INLYTA [Suspect]
     Active Substance: AXITINIB
     Dosage: TAKE 3 TABLETS BID
     Route: 048
     Dates: start: 20230906
  4. PEMBROLIZUMAB [Concomitant]
     Active Substance: PEMBROLIZUMAB
     Indication: Renal cancer
     Dosage: (200) Q21 DX 6 V4.0, CYCLES GIVEN/ PLANNED 33/52
     Dates: start: 20201230

REACTIONS (8)
  - Ulcer haemorrhage [Not Recovered/Not Resolved]
  - Colitis [Not Recovered/Not Resolved]
  - Skin disorder [Unknown]
  - Diarrhoea [Unknown]
  - Increased tendency to bruise [Not Recovered/Not Resolved]
  - Skin fissures [Not Recovered/Not Resolved]
  - Purpura [Unknown]
  - Fatigue [Unknown]
